FAERS Safety Report 7374825-7 (Version None)
Quarter: 2011Q1

REPORT INFORMATION
  Report Type: 
  Country: None (occurrence: None)
  Receive Date: 20110325
  Receipt Date: 20110210
  Transmission Date: 20110831
  Serious: Yes (Other)
  Sender: FDA-Public Use
  Company Number: ES-AMGEN-ESPSP2011008081

PATIENT
  Age: 36 Year
  Sex: Female

DRUGS (2)
  1. NPLATE [Suspect]
     Dosage: 2.5 A?G/KG, UNK
     Dates: end: 20100524
  2. NPLATE [Suspect]
     Indication: IDIOPATHIC THROMBOCYTOPENIC PURPURA
     Dosage: 1 A?G/KG, UNK
     Dates: start: 20091118

REACTIONS (2)
  - DRUG INEFFECTIVE [None]
  - NO THERAPEUTIC RESPONSE [None]
